FAERS Safety Report 6308625-3 (Version None)
Quarter: 2009Q3

REPORT INFORMATION
  Report Type: 
  Country: None (occurrence: None)
  Receive Date: 20090813
  Receipt Date: 20090731
  Transmission Date: 20100115
  Serious: Yes (Hospitalization)
  Sender: FDA-Public Use
  Company Number: GB-ASTRAZENECA-2009SE06558

PATIENT
  Age: 23897 Day
  Sex: Female

DRUGS (3)
  1. ARIMIDEX [Suspect]
     Indication: PROPHYLAXIS
     Route: 048
     Dates: start: 20051201
  2. LIPITOR [Concomitant]
  3. AMLODIPINE [Concomitant]

REACTIONS (2)
  - HEADACHE [None]
  - VISUAL FIELD DEFECT [None]
